FAERS Safety Report 6958974-0 (Version None)
Quarter: 2010Q3

REPORT INFORMATION
  Report Type: 
  Country: None (occurrence: None)
  Receive Date: 20100831
  Receipt Date: 20100824
  Transmission Date: 20110219
  Serious: Yes (Other)
  Sender: FDA-Public Use
  Company Number: GB-PFIZER INC-2010089031

PATIENT
  Age: 21 Year
  Sex: Male
  Weight: 80 kg

DRUGS (3)
  1. DEPO-MEDROL [Suspect]
     Indication: PAIN
     Dosage: 40 MG, SINGLE
     Route: 030
     Dates: start: 20091201, end: 20091201
  2. ZOLADEX [Concomitant]
     Indication: TRANSGENDER HORMONAL THERAPY
     Dosage: 1 DF, EVERY 3 MONTHS
     Route: 030
  3. ESTROGENS [Concomitant]
     Indication: TRANSGENDER HORMONAL THERAPY
     Dosage: 8 MG, 1X/DAY
     Route: 048
     Dates: start: 20070101

REACTIONS (4)
  - DEPRESSION [None]
  - MANIA [None]
  - MOOD ALTERED [None]
  - PSYCHOTIC DISORDER [None]
